FAERS Safety Report 20694935 (Version 1)
Quarter: 2022Q2

REPORT INFORMATION
  Report Type: Spontaneous
  Country: JP (occurrence: JP)
  Receive Date: 20220411
  Receipt Date: 20220411
  Transmission Date: 20220720
  Serious: Yes (Other)
  Sender: FDA-Public Use
  Company Number: JP-TEVA-2022-JP-2026537

PATIENT
  Sex: Female

DRUGS (3)
  1. AZILECT [Suspect]
     Active Substance: RASAGILINE MESYLATE
     Indication: Parkinson^s disease
     Route: 048
  2. NEUPRO [Concomitant]
     Active Substance: ROTIGOTINE
     Route: 065
  3. BENSERAZIDE HYDROCHLORIDE\LEVODOPA [Concomitant]
     Active Substance: BENSERAZIDE HYDROCHLORIDE\LEVODOPA
     Route: 065

REACTIONS (5)
  - Parkinson^s disease [Unknown]
  - Memory impairment [Unknown]
  - Bruxism [Unknown]
  - Dizziness [Unknown]
  - Gait disturbance [Unknown]
